FAERS Safety Report 5582679-4 (Version None)
Quarter: 2008Q1

REPORT INFORMATION
  Report Type: 
  Country: None (occurrence: None)
  Receive Date: 20080107
  Receipt Date: 20080103
  Transmission Date: 20080703
  Serious: Yes (Death, Hospitalization)
  Sender: FDA-Public Use
  Company Number: DE-ELI_LILLY_AND_COMPANY-DE200710004373

PATIENT
  Age: 84 Year
  Sex: Female

DRUGS (15)
  1. OLANZAPINE [Suspect]
     Dosage: 2.5 MG, DAILY (1/D)
     Route: 048
     Dates: start: 20070501
  2. OLANZAPINE [Suspect]
     Dosage: 10 MG, DAILY (1/D)
     Route: 048
  3. TOREM [Concomitant]
  4. ACETYLSALICYLIC ACID SRT [Concomitant]
  5. BENALAPRIL [Concomitant]
  6. THEOPHYLLINE [Concomitant]
  7. OSTEOPLUS [Concomitant]
  8. KALINOR [Concomitant]
  9. SPIRIVA [Concomitant]
  10. FOSAMAX [Concomitant]
  11. DURAGESIC-100 [Concomitant]
  12. EUNERPAN [Concomitant]
  13. DULOXETINE HYDROCHLORIDE [Concomitant]
  14. METOCLOPRAMIDE [Concomitant]
     Dosage: UNK, AS NEEDED
  15. BRONCHOSPRAY [Concomitant]
     Dosage: UNK, AS NEEDED

REACTIONS (2)
  - DEATH [None]
  - RHABDOMYOLYSIS [None]
